FAERS Safety Report 17201892 (Version 1)
Quarter: 2020Q1

REPORT INFORMATION
  Report Type: Spontaneous
  Country: US (occurrence: US)
  Receive Date: 20191225
  Receipt Date: 20191225
  Transmission Date: 20200409
  Serious: No
  Sender: FDA-Public Use
  Company Number: None

PATIENT
  Age: 73 Year
  Sex: Female
  Weight: 75.51 kg

DRUGS (4)
  1. DEXAMETHASONE 10MG IVPB [Concomitant]
     Dates: start: 20191223, end: 20191223
  2. GAMMAGARD LIQUID [Suspect]
     Active Substance: HUMAN IMMUNOGLOBULIN G
     Indication: HYPOGAMMAGLOBULINAEMIA
     Dosage: ?          OTHER FREQUENCY:ONCE A MONTH;?
     Route: 042
     Dates: start: 20191223, end: 20191223
  3. BENADRYL 25MG IVPB [Concomitant]
     Dates: start: 20191223, end: 20191223
  4. ACETAMINOPHEN 650MG PO [Concomitant]
     Dates: start: 20191223, end: 20191223

REACTIONS (3)
  - Feeling cold [None]
  - Tremor [None]
  - Chills [None]

NARRATIVE: CASE EVENT DATE: 20191223
